FAERS Safety Report 16443617 (Version 4)
Quarter: 2019Q4

REPORT INFORMATION
  Report Type: Spontaneous
  Country: JP (occurrence: JP)
  Receive Date: 20190618
  Receipt Date: 20191213
  Transmission Date: 20200122
  Serious: Yes (Life-Threatening, Hospitalization, Other)
  Sender: FDA-Public Use
  Company Number: JP-SA-2019SA161815

PATIENT
  Age: 67 Year
  Sex: Male
  Weight: 43.6 kg

DRUGS (14)
  1. BROTIZOLAM [Concomitant]
     Active Substance: BROTIZOLAM
     Indication: HYPERURICAEMIA
     Dosage: 1 DF, QD
     Route: 048
  2. BIOTIN [Concomitant]
     Active Substance: BIOTIN
     Indication: DERMATITIS ATOPIC
     Dosage: UNK
     Route: 048
     Dates: start: 201903, end: 20190527
  3. DUPIXENT [Suspect]
     Active Substance: DUPILUMAB
     Indication: DERMATITIS ATOPIC
     Dosage: 300 MG, QOW
     Route: 058
     Dates: start: 20190306, end: 20190517
  4. MIYA-BM [Concomitant]
     Active Substance: CLOSTRIDIUM BUTYRICUM SPORES STRAIN M-55
     Indication: DIARRHOEA
     Dosage: UNK
     Route: 048
     Dates: start: 20190514, end: 20190527
  5. ZETIA [Concomitant]
     Active Substance: EZETIMIBE
     Indication: HYPERLIPIDAEMIA
     Dosage: 1 DF, QD
     Route: 048
  6. ROSUVASTATIN [ROSUVASTATIN CALCIUM] [Concomitant]
     Active Substance: ROSUVASTATIN CALCIUM
     Indication: INSOMNIA
     Dosage: 1 DF, QD
     Route: 048
  7. CINAL [Concomitant]
     Active Substance: ASCORBIC ACID\CALCIUM PANTOTHENATE
     Indication: DIARRHOEA
     Dosage: UNK
     Route: 048
     Dates: start: 20190514, end: 20190527
  8. ZETIA [Concomitant]
     Active Substance: EZETIMIBE
     Indication: HYPERURICAEMIA
  9. RUPAFIN [Concomitant]
     Active Substance: RUPATADINE FUMARATE
     Indication: ZINC DEFICIENCY
     Dosage: UNK
     Route: 048
     Dates: start: 201903, end: 20190527
  10. CLOBETASOL PROPIONATE. [Suspect]
     Active Substance: CLOBETASOL PROPIONATE
     Indication: PRODUCT USED FOR UNKNOWN INDICATION
     Route: 061
  11. BROTIZOLAM [Concomitant]
     Active Substance: BROTIZOLAM
     Indication: HYPERLIPIDAEMIA
  12. BILANOA [Concomitant]
     Active Substance: BILASTINE
     Indication: ZINC DEFICIENCY
     Dosage: UNK
     Route: 048
     Dates: start: 201903, end: 20190527
  13. FEBURIC [Concomitant]
     Active Substance: FEBUXOSTAT
     Indication: INSOMNIA
     Dosage: 1 DF, QD
     Route: 048
  14. PROMAC [POLAPREZINC] [Concomitant]
     Active Substance: POLAPREZINC
     Indication: DERMATITIS ATOPIC
     Dosage: UNK
     Route: 048
     Dates: start: 201903, end: 20190527

REACTIONS (7)
  - Pyrexia [Recovered/Resolved]
  - Altered state of consciousness [Recovered/Resolved]
  - Anaemia [Recovered/Resolved]
  - Molluscum contagiosum [Recovering/Resolving]
  - Erythema [Recovering/Resolving]
  - Swelling [Recovering/Resolving]
  - Pain [Recovering/Resolving]

NARRATIVE: CASE EVENT DATE: 201904
